FAERS Safety Report 16489350 (Version 1)
Quarter: 2019Q2

REPORT INFORMATION
  Report Type: Spontaneous
  Country: US (occurrence: US)
  Receive Date: 20190628
  Receipt Date: 20190628
  Transmission Date: 20190711
  Serious: No
  Sender: FDA-Public Use
  Company Number: US-PFIZER INC-2019274087

PATIENT
  Age: 19 Year
  Sex: Male

DRUGS (2)
  1. GENOTROPIN [Suspect]
     Active Substance: SOMATROPIN
     Indication: GROWTH HORMONE DEFICIENCY
     Dosage: 0.5 MG, DAILY
     Dates: start: 20180225
  2. GENOTROPIN [Suspect]
     Active Substance: SOMATROPIN
     Dosage: UNK (6 DAYS A WEEK)
     Dates: start: 20180225, end: 201811

REACTIONS (4)
  - Product prescribing error [Unknown]
  - Fatigue [Unknown]
  - Intentional product misuse [Unknown]
  - Somnolence [Unknown]
